FAERS Safety Report 14107442 (Version 1)
Quarter: 2017Q4

REPORT INFORMATION
  Report Type: Spontaneous
  Country: DE (occurrence: DE)
  Receive Date: 20171019
  Receipt Date: 20171019
  Transmission Date: 20180321
  Serious: Yes (Other)
  Sender: FDA-Public Use
  Company Number: GXKR2017DE005237

PATIENT
  Age: 74 Year
  Sex: Female

DRUGS (2)
  1. CORTISONE [Concomitant]
     Active Substance: CORTISONE\HYDROCORTISONE
     Indication: PRODUCT USED FOR UNKNOWN INDICATION
     Dosage: 5 MG, QD
     Route: 065
     Dates: start: 1997
  2. THIAMAZOL HEXAL [Suspect]
     Active Substance: METHIMAZOLE
     Indication: THYROID DISORDER
     Dosage: 5 MG, QD
     Route: 048

REACTIONS (5)
  - Pruritus [Unknown]
  - Dry skin [Unknown]
  - Weight decreased [Unknown]
  - Muscle atrophy [Unknown]
  - Alopecia [Unknown]
